FAERS Safety Report 4647857-7 (Version None)
Quarter: 2005Q2

REPORT INFORMATION
  Report Type: 
  Country: None (occurrence: None)
  Receive Date: 20050428
  Receipt Date: 20050422
  Transmission Date: 20051028
  Serious: Yes (Hospitalization)
  Sender: FDA-Public Use
  Company Number: FR-GLAXOSMITHKLINE-B0379287A

PATIENT
  Age: 81 Year
  Sex: Female

DRUGS (11)
  1. AUGMENTIN [Suspect]
     Indication: ILL-DEFINED DISORDER
     Route: 048
     Dates: start: 20050205, end: 20050211
  2. MOTILIUM [Suspect]
     Dosage: 3UNIT PER DAY
     Route: 048
     Dates: end: 20050212
  3. TARDYFERON [Suspect]
     Dosage: 1UNIT PER DAY
     Route: 048
     Dates: end: 20050212
  4. DAFLON 500 MG [Suspect]
     Dosage: 2UNIT PER DAY
     Route: 048
     Dates: end: 20050212
  5. FLUDEX [Suspect]
     Dosage: 1UNIT PER DAY
     Route: 048
     Dates: end: 20050212
  6. AMLOR [Suspect]
     Dosage: 1UNIT PER DAY
     Route: 048
     Dates: end: 20050212
  7. KARDEGIC [Concomitant]
     Route: 065
  8. HUMALOG [Concomitant]
     Route: 065
  9. HYPERIUM [Concomitant]
     Route: 065
  10. COVERSYL [Concomitant]
     Route: 065
  11. REMINYL [Concomitant]
     Route: 065

REACTIONS (4)
  - DEHYDRATION [None]
  - DISORIENTATION [None]
  - HYPOKALAEMIA [None]
  - HYPONATRAEMIA [None]
